FAERS Safety Report 12633688 (Version 1)
Quarter: 2016Q3

REPORT INFORMATION
  Report Type: Spontaneous
  Country: US (occurrence: US)
  Receive Date: 20160808
  Receipt Date: 20160808
  Transmission Date: 20161109
  Serious: Yes (Hospitalization, Other)
  Sender: FDA-Public Use
  Company Number: PHEH2016US019496

PATIENT
  Sex: Female

DRUGS (1)
  1. TASIGNA [Suspect]
     Active Substance: NILOTINIB
     Indication: PRODUCT USED FOR UNKNOWN INDICATION
     Dosage: 150 MG, BID
     Route: 065

REACTIONS (6)
  - Pain [Unknown]
  - Acute myeloid leukaemia [Unknown]
  - Leukaemia [Unknown]
  - Intestinal obstruction [Unknown]
  - Nausea [Unknown]
  - Abdominal pain [Unknown]
